FAERS Safety Report 9580248 (Version 1)
Quarter: 2013Q4

REPORT INFORMATION
  Report Type: Spontaneous
  Country: US (occurrence: None)
  Receive Date: 20131001
  Receipt Date: 20131001
  Transmission Date: 20140711
  Serious: Yes (Hospitalization)
  Sender: FDA-Public Use
  Company Number: None

PATIENT
  Age: 82 Year
  Sex: Male
  Weight: 56.7 kg

DRUGS (1)
  1. TEMOZOLOMIDE [Suspect]
     Indication: CHEMOTHERAPY
     Route: 048
     Dates: start: 20130621, end: 20130710

REACTIONS (2)
  - Conjunctival haemorrhage [None]
  - Thrombocytopenia [None]
